FAERS Safety Report 14079703 (Version 3)
Quarter: 2018Q4

REPORT INFORMATION
  Report Type: Spontaneous
  Country: BR (occurrence: BR)
  Receive Date: 20171012
  Receipt Date: 20181211
  Transmission Date: 20190204
  Serious: Yes (Hospitalization, Other)
  Sender: FDA-Public Use
  Company Number: BR-PFIZER INC-2017434081

PATIENT
  Age: 79 Year
  Sex: Male

DRUGS (2)
  1. XALATAN [Suspect]
     Active Substance: LATANOPROST
     Indication: GLAUCOMA
     Dosage: ONE DROP EACH EYE, 1X/DAY
     Route: 047
     Dates: start: 2012
  2. TIMOLOL MALEATE. [Concomitant]
     Active Substance: TIMOLOL MALEATE
     Indication: GLAUCOMA
     Dosage: 0.5 MG, 2X/DAY (IN THE MORNING AND AT NIGHT)
     Dates: start: 2012

REACTIONS (6)
  - Fall [Recovered/Resolved]
  - Asthenopia [Unknown]
  - Femur fracture [Not Recovered/Not Resolved]
  - Cataract [Unknown]
  - Gait disturbance [Recovered/Resolved]
  - Nervousness [Unknown]

NARRATIVE: CASE EVENT DATE: 2015
